FAERS Safety Report 12222927 (Version 1)
Quarter: 2016Q1

REPORT INFORMATION
  Report Type: Spontaneous
  Country: US (occurrence: US)
  Receive Date: 20160330
  Receipt Date: 20160330
  Transmission Date: 20160526
  Serious: No
  Sender: FDA-Public Use
  Company Number: US-PERRIGO-15US006537

PATIENT
  Age: 71 Year
  Sex: Female
  Weight: 79.37 kg

DRUGS (2)
  1. ACETAMINOPHEN 500MG 975 [Suspect]
     Active Substance: ACETAMINOPHEN
     Indication: PRODUCT USED FOR UNKNOWN INDICATION
     Dosage: 1000 MG, POSSIBLY ONCE OR TWICE
     Route: 048
     Dates: start: 20150624, end: 20150624
  2. ACETAMINOPHEN. [Suspect]
     Active Substance: ACETAMINOPHEN
     Indication: PRODUCT USED FOR UNKNOWN INDICATION
     Dosage: 1300 MG, POSSIBLY ONCE OR TWICE
     Route: 048
     Dates: start: 20150624, end: 20150624

REACTIONS (3)
  - Overdose [Recovered/Resolved]
  - Drug administration error [Recovered/Resolved]
  - Dizziness [Unknown]

NARRATIVE: CASE EVENT DATE: 20150624
